FAERS Safety Report 23096335 (Version 1)
Quarter: 2023Q4

REPORT INFORMATION
  Report Type: Spontaneous
  Country: US (occurrence: None)
  Receive Date: 20231019
  Receipt Date: 20231019
  Transmission Date: 20240110
  Serious: Yes (Hospitalization)
  Sender: FDA-Public Use
  Company Number: None

PATIENT
  Age: 55 Year
  Sex: Female

DRUGS (15)
  1. HUMIRA [Suspect]
     Active Substance: ADALIMUMAB
     Dosage: OTHER QUANTITY : 40 MG/0.4ML ;?OTHER FREQUENCY : EVERY 10 DAYS;?
     Route: 058
     Dates: start: 20230527
  2. HUMIRA [Suspect]
     Active Substance: ADALIMUMAB
     Dosage: OTHER FREQUENCY : EVERY 10 DAYS;?
     Route: 058
  3. BACTRIM DS [Concomitant]
     Active Substance: SULFAMETHOXAZOLE\TRIMETHOPRIM
  4. CALCIUM\VITAMIN D [Concomitant]
     Active Substance: CALCIUM\VITAMIN D
  5. DULOXETINE [Concomitant]
  6. FLUOXETINE [Concomitant]
  7. HYDROXYZINE HYDROCHLORIDE [Concomitant]
     Active Substance: HYDROXYZINE HYDROCHLORIDE
  8. LATUDA [Concomitant]
     Active Substance: LURASIDONE HYDROCHLORIDE
  9. MAGNESIUM [Concomitant]
  10. MELOXICAM [Concomitant]
  11. MONTELUKAST [Concomitant]
     Active Substance: MONTELUKAST SODIUM
  12. PANTOPRAZOLE [Concomitant]
  13. PREGABALIN [Concomitant]
  14. QUETIAPINE [Concomitant]
  15. TRAZODONE [Concomitant]

REACTIONS (1)
  - Femur fracture [None]

NARRATIVE: CASE EVENT DATE: 20231013
